FAERS Safety Report 24527115 (Version 1)
Quarter: 2024Q4

REPORT INFORMATION
  Report Type: Spontaneous
  Country: BR (occurrence: BR)
  Receive Date: 20241021
  Receipt Date: 20241021
  Transmission Date: 20250114
  Serious: No
  Sender: ROCHE
  Company Number: BR-ROCHE-3466727

PATIENT
  Age: 41 Year
  Sex: Female

DRUGS (1)
  1. COTELLIC [Suspect]
     Active Substance: COBIMETINIB
     Indication: Rosai-Dorfman syndrome
     Route: 065

REACTIONS (1)
  - Skin disorder [Unknown]
